FAERS Safety Report 26048595 (Version 1)
Quarter: 2025Q4

REPORT INFORMATION
  Report Type: Report from Study
  Country: EU (occurrence: EU)
  Receive Date: 20251114
  Receipt Date: 20251114
  Transmission Date: 20260117
  Serious: Yes (Other)
  Sender: ABBVIE
  Company Number: EU-ABBVIE-6546184

PATIENT
  Age: 72 Year
  Sex: Female
  Weight: 97 kg

DRUGS (6)
  1. FOSCARBIDOPA\FOSLEVODOPA [Suspect]
     Active Substance: FOSCARBIDOPA\FOSLEVODOPA
     Indication: Parkinson^s disease
     Dosage: LAST ADMIN DATE : NOV 2025
     Route: 058
     Dates: start: 20251103
  2. FOSCARBIDOPA\FOSLEVODOPA [Suspect]
     Active Substance: FOSCARBIDOPA\FOSLEVODOPA
     Dosage: REDUCED PUMP FROM 0.37 TO 0.35 ML, ED:0.3, LR:0.35, HR:0.44, BR:0.37, LD:2 , FIRST ADMIN DATE : N...
     Route: 058
  3. AMLODIPINE [Concomitant]
     Active Substance: AMLODIPINE BESYLATE
     Indication: Product used for unknown indication
  4. AZILECT [Concomitant]
     Active Substance: RASAGILINE MESYLATE
     Indication: Product used for unknown indication
  5. BENSERAZIDE\LEVODOPA [Concomitant]
     Active Substance: BENSERAZIDE\LEVODOPA
     Indication: Product used for unknown indication
  6. ALPRAZOLAM [Concomitant]
     Active Substance: ALPRAZOLAM
     Indication: Product used for unknown indication
     Dosage: TIME INTERVAL: 0.33333333 DAYS

REACTIONS (13)
  - Suicidal ideation [Unknown]
  - Aggression [Unknown]
  - Emotional disorder [Unknown]
  - Dyspnoea [Unknown]
  - Heart rate increased [Unknown]
  - Feeling abnormal [Unknown]
  - Erythema [Unknown]
  - Decreased appetite [Unknown]
  - Product taste abnormal [Unknown]
  - Agitation [Unknown]
  - Depression [Unknown]
  - Infusion site reaction [Unknown]
  - Infusion site discolouration [Unknown]

NARRATIVE: CASE EVENT DATE: 20251101
